FAERS Safety Report 6892203-1 (Version None)
Quarter: 2010Q3

REPORT INFORMATION
  Report Type: 
  Country: None (occurrence: None)
  Receive Date: 20100731
  Receipt Date: 20080401
  Transmission Date: 20110219
  Serious: No
  Sender: FDA-Public Use
  Company Number: US-PFIZER INC-2008014534

PATIENT
  Sex: Male

DRUGS (1)
  1. NORVASC [Suspect]
     Route: 048

REACTIONS (5)
  - CHEST PAIN [None]
  - DIZZINESS [None]
  - DYSPNOEA [None]
  - HEADACHE [None]
  - MUSCULAR WEAKNESS [None]
